FAERS Safety Report 6761474-4 (Version None)
Quarter: 2010Q2

REPORT INFORMATION
  Report Type: 
  Country: None (occurrence: None)
  Receive Date: 20100607
  Receipt Date: 20100422
  Transmission Date: 20101027
  Serious: Yes (Hospitalization)
  Sender: FDA-Public Use
  Company Number: 1-17245659

PATIENT
  Age: 56 Year
  Sex: Female
  Weight: 76.2043 kg

DRUGS (15)
  1. QUININE (MANUFACTURER UNKNOWN) [Suspect]
     Indication: MUSCLE SPASMS
     Dosage: 325 MG, 2X DAILY, OCCASIONALLY, ORAL
     Route: 048
     Dates: start: 20021004
  2. DIOVAN (LOSARTAN) [Concomitant]
  3. CRESTOR (ROSUVATATIN) [Concomitant]
  4. PROTONIX [Concomitant]
  5. AZITHROMYCIN [Concomitant]
  6. BENZONATATE [Concomitant]
  7. METHYLPREDNISOLONE [Concomitant]
  8. ANDEHIST [Concomitant]
  9. LEVAQUIN [Concomitant]
  10. PREDNISONE [Concomitant]
  11. NORVASC [Concomitant]
  12. ^BLOOD PRESSURE DRUG^ [Concomitant]
  13. MULTI-VITAMIN [Concomitant]
  14. CALCIUM CARBONATE [Concomitant]
  15. POTASSIUM [Concomitant]

REACTIONS (3)
  - EVANS SYNDROME [None]
  - GASTROENTERITIS [None]
  - IDIOPATHIC THROMBOCYTOPENIC PURPURA [None]
